FAERS Safety Report 4638018-6 (Version None)
Quarter: 2005Q2

REPORT INFORMATION
  Report Type: 
  Country: None (occurrence: None)
  Receive Date: 20050418
  Receipt Date: 20050408
  Transmission Date: 20051028
  Serious: Yes (Hospitalization, Other)
  Sender: FDA-Public Use
  Company Number: DE-BRISTOL-MYERS SQUIBB COMPANY-12927299

PATIENT
  Sex: Female
  Weight: 63 kg

DRUGS (13)
  1. CISPLATIN [Suspect]
     Indication: NON-SMALL CELL LUNG CANCER
     Route: 042
     Dates: start: 20030325
  2. CISPLATIN [Suspect]
     Route: 042
     Dates: start: 20030318
  3. GEMCITABINE [Suspect]
     Indication: NON-SMALL CELL LUNG CANCER
     Route: 042
     Dates: start: 20030325
  4. GEMCITABINE [Suspect]
     Route: 042
     Dates: start: 20030318
  5. VINORELBINE TARTRATE [Suspect]
     Indication: NON-SMALL CELL LUNG CANCER
     Route: 042
     Dates: start: 20030318
  6. VINORELBINE TARTRATE [Suspect]
     Route: 042
     Dates: start: 20030325
  7. ASPIRIN [Concomitant]
  8. ISOSORBIDE DINITRATE [Concomitant]
     Indication: CORONARY ARTERY DISEASE
     Dates: start: 20000201
  9. RAMIPRIL [Concomitant]
     Indication: CORONARY ARTERY DISEASE
     Dates: start: 20000201
  10. TIOTROPIUM BROMIDE [Concomitant]
     Indication: CHRONIC OBSTRUCTIVE PULMONARY DISEASE
     Dates: start: 20030201
  11. SALMETEROL XINAFOATE [Concomitant]
     Indication: CHRONIC OBSTRUCTIVE PULMONARY DISEASE
     Dates: start: 20030201
  12. GRANISETRON [Concomitant]
     Indication: PREMEDICATION
     Dates: start: 20030325, end: 20030327
  13. DEXAMETHASONE [Concomitant]
     Indication: VOMITING
     Dates: start: 20030325

REACTIONS (2)
  - BRONCHOPNEUMONIA [None]
  - NEUTROPENIA [None]
